FAERS Safety Report 23216748 (Version 2)
Quarter: 2024Q1

REPORT INFORMATION
  Report Type: Spontaneous
  Country: GB (occurrence: GB)
  Receive Date: 20231122
  Receipt Date: 20240220
  Transmission Date: 20240409
  Serious: Yes (Life-Threatening, Hospitalization, Other)
  Sender: FDA-Public Use
  Company Number: GB-BRISTOL-MYERS SQUIBB COMPANY-2023-168230

PATIENT
  Age: 72 Year
  Sex: Female
  Weight: 87 kg

DRUGS (2)
  1. OPDIVO [Suspect]
     Active Substance: NIVOLUMAB
     Indication: Metastatic malignant melanoma
     Dates: start: 20231023
  2. YERVOY [Suspect]
     Active Substance: IPILIMUMAB
     Indication: Metastatic malignant melanoma
     Dates: start: 20231023

REACTIONS (4)
  - Muscular weakness [Unknown]
  - Eyelid ptosis [Unknown]
  - Dyspnoea [Unknown]
  - Syncope [Unknown]

NARRATIVE: CASE EVENT DATE: 20231101
